FAERS Safety Report 14349445 (Version 1)
Quarter: 2018Q1

REPORT INFORMATION
  Report Type: Spontaneous
  Country: US (occurrence: US)
  Receive Date: 20180104
  Receipt Date: 20180104
  Transmission Date: 20180509
  Serious: No
  Sender: FDA-Public Use
  Company Number: US-BIOGEN-2017BI00503706

PATIENT
  Sex: Female

DRUGS (1)
  1. AVONEX [Suspect]
     Active Substance: INTERFERON BETA-1A
     Indication: MULTIPLE SCLEROSIS
     Route: 065
     Dates: start: 20171107

REACTIONS (7)
  - Hypertension [Unknown]
  - Device malfunction [Unknown]
  - Emotional distress [Unknown]
  - Anger [Unknown]
  - Multiple sclerosis [Unknown]
  - Device issue [Unknown]
  - Device difficult to use [Unknown]
